FAERS Safety Report 16470801 (Version 3)
Quarter: 2019Q3

REPORT INFORMATION
  Report Type: Spontaneous
  Country: US (occurrence: US)
  Receive Date: 20190624
  Receipt Date: 20190731
  Transmission Date: 20191004
  Serious: Yes (Other)
  Sender: FDA-Public Use
  Company Number: US-JNJFOC-20190620949

PATIENT
  Sex: Female

DRUGS (4)
  1. SYNTHROID [Concomitant]
     Active Substance: LEVOTHYROXINE SODIUM
     Route: 048
  2. XARELTO [Suspect]
     Active Substance: RIVAROXABAN
     Indication: ATRIAL FIBRILLATION
     Route: 048
     Dates: start: 20170717
  3. XARELTO [Suspect]
     Active Substance: RIVAROXABAN
     Indication: CEREBROVASCULAR ACCIDENT PROPHYLAXIS
  4. ALLOPURINOL. [Concomitant]
     Active Substance: ALLOPURINOL
     Route: 049

REACTIONS (5)
  - Muscle spasms [Not Recovered/Not Resolved]
  - Product use complaint [Unknown]
  - Drug hypersensitivity [Unknown]
  - Shoulder operation [Unknown]
  - Knee arthroplasty [Unknown]
